FAERS Safety Report 25741158 (Version 2)
Quarter: 2025Q4

REPORT INFORMATION
  Report Type: Report from Study
  Country: MX (occurrence: MX)
  Receive Date: 20250829
  Receipt Date: 20251023
  Transmission Date: 20260117
  Serious: Yes (Death, Life-Threatening, Hospitalization, Other)
  Sender: NOVARTIS
  Company Number: MX-002147023-NVSC2025MX095430

PATIENT
  Age: 20 Year
  Sex: Male

DRUGS (9)
  1. FABHALTA [Suspect]
     Active Substance: IPTACOPAN HYDROCHLORIDE
     Indication: Paroxysmal nocturnal haemoglobinuria
     Dosage: UNK (USED IT FROM DECEMBER)
     Route: 065
     Dates: end: 202501
  2. FABHALTA [Suspect]
     Active Substance: IPTACOPAN HYDROCHLORIDE
     Indication: Herpes virus infection
     Dosage: 200 MG, BID (400 MG)
     Route: 048
     Dates: end: 20250319
  3. FABHALTA [Suspect]
     Active Substance: IPTACOPAN HYDROCHLORIDE
     Indication: Pneumocystis jirovecii pneumonia
  4. ELTROMBOPAG [Suspect]
     Active Substance: ELTROMBOPAG
     Indication: Paroxysmal nocturnal haemoglobinuria
     Dosage: 50 MG (TRANSFUSIONS)
     Route: 048
  5. ELTROMBOPAG [Suspect]
     Active Substance: ELTROMBOPAG
     Indication: Herpes virus infection
  6. ELTROMBOPAG [Suspect]
     Active Substance: ELTROMBOPAG
     Indication: Pneumocystis jirovecii pneumonia
  7. DEFERASIROX [Concomitant]
     Active Substance: DEFERASIROX
     Indication: Product used for unknown indication
     Dosage: 500 MG, Q8H
     Route: 048
  8. ACYCLOVIR [Concomitant]
     Active Substance: ACYCLOVIR
     Indication: Herpes virus infection
     Dosage: 200 MG, Q8H
     Route: 048
  9. SULFAMETHOXAZOLE\TRIMETHOPRIM [Concomitant]
     Active Substance: SULFAMETHOXAZOLE\TRIMETHOPRIM
     Indication: Pneumocystis jirovecii pneumonia
     Dosage: 80/400, QD
     Route: 065

REACTIONS (11)
  - Paroxysmal nocturnal haemoglobinuria [Fatal]
  - Condition aggravated [Fatal]
  - Large intestinal ulcer [Fatal]
  - Mouth ulceration [Fatal]
  - Gastrointestinal haemorrhage [Fatal]
  - Infection [Fatal]
  - Central nervous system haemorrhage [Fatal]
  - Haemoglobin decreased [Unknown]
  - Platelet count decreased [Unknown]
  - Cytopenia [Unknown]
  - Neutropenia [Unknown]
